APPROVED DRUG PRODUCT: TRIAMTERENE AND HYDROCHLOROTHIAZIDE
Active Ingredient: HYDROCHLOROTHIAZIDE; TRIAMTERENE
Strength: 25MG;50MG
Dosage Form/Route: CAPSULE;ORAL
Application: A073191 | Product #001
Applicant: CHARTWELL RX SCIENCES LLC
Approved: Jul 31, 1991 | RLD: No | RS: No | Type: DISCN